FAERS Safety Report 14561223 (Version 1)
Quarter: 2018Q1

REPORT INFORMATION
  Report Type: Spontaneous
  Country: US (occurrence: US)
  Receive Date: 20180221
  Receipt Date: 20180221
  Transmission Date: 20180509
  Serious: Yes (Death)
  Sender: FDA-Public Use
  Company Number: None

PATIENT
  Age: 17 Year
  Sex: Male
  Weight: 45.36 kg

DRUGS (1)
  1. DEPAKOTE [Suspect]
     Active Substance: DIVALPROEX SODIUM
     Indication: JUVENILE MYOCLONIC EPILEPSY
     Route: 048
     Dates: start: 2012, end: 20170101

REACTIONS (1)
  - B-cell type acute leukaemia [None]

NARRATIVE: CASE EVENT DATE: 20160518
